FAERS Safety Report 16565785 (Version 2)
Quarter: 2019Q3

REPORT INFORMATION
  Report Type: Report from Study
  Country: US (occurrence: US)
  Receive Date: 20190712
  Receipt Date: 20190718
  Transmission Date: 20191004
  Serious: Yes (Death, Other)
  Sender: FDA-Public Use
  Company Number: US-ACADIA PHARMACEUTICALS INC.-ACA-2019-013379

PATIENT
  Age: 80 Year
  Sex: Male
  Weight: 86 kg

DRUGS (29)
  1. NUPLAZID [Suspect]
     Active Substance: PIMAVANSERIN TARTRATE
     Indication: PARKINSON^S DISEASE PSYCHOSIS
     Dosage: 34 MG, QD
     Route: 048
     Dates: start: 20170622
  2. MEMANTINE HCL [Concomitant]
     Active Substance: MEMANTINE
     Indication: COGNITIVE DISORDER
     Dosage: 10 MG, QD
     Route: 048
     Dates: start: 20160202, end: 20190528
  3. EXELON [Concomitant]
     Active Substance: RIVASTIGMINE TARTRATE
     Indication: DEMENTIA
     Dosage: APPLY 1 PATCH (4.6 MG), EVERY DAY
     Route: 062
     Dates: start: 20190517
  4. SINEMET [Concomitant]
     Active Substance: CARBIDOPA\LEVODOPA
     Indication: PARKINSONISM
     Dosage: 25 MG-100 MG, 1.5 MG TAB, 4 TIMES PER DAY
     Dates: start: 20190517
  5. ACETAMINOPHEN. [Concomitant]
     Active Substance: ACETAMINOPHEN
     Indication: PYREXIA
  6. ATIVAN [Concomitant]
     Active Substance: LORAZEPAM
     Indication: RESTLESSNESS
  7. XANAX [Concomitant]
     Active Substance: ALPRAZOLAM
     Dosage: 0.5 MG, 1 TAB 2 TIMES PER DAY PRN
     Dates: start: 20190523
  8. CARBIDOPA/LEVODOPA [Concomitant]
     Active Substance: CARBIDOPA\LEVODOPA
     Indication: PARKINSON^S DISEASE
     Dosage: 25/100 MG 1.5 TAB 4 TIMES A DAY
     Route: 048
     Dates: start: 20160316, end: 20190528
  9. KETOROLAC [Concomitant]
     Active Substance: KETOROLAC TROMETHAMINE
     Indication: PRODUCT USED FOR UNKNOWN INDICATION
     Dosage: APPLY 1 DROP (0.25 MG) 4 TIMES PER DAY, AS NEEDED
     Route: 047
     Dates: start: 20190517
  10. OXYFAST [Concomitant]
     Active Substance: OXYCODONE
     Indication: PAIN
  11. SENNA PLUS [Concomitant]
     Active Substance: DOCUSATE SODIUM\SENNOSIDES\SENNOSIDES A AND B
     Indication: CONSTIPATION
     Dosage: 8.6 MG-50 MG, 2 TABS, 2 TIMES PER DAY, AS NEEDED
     Dates: start: 20190517
  12. DUONEB [Concomitant]
     Active Substance: ALBUTEROL SULFATE\IPRATROPIUM BROMIDE
     Indication: PRODUCT USED FOR UNKNOWN INDICATION
     Dosage: INHALE 3 MILLILITERS BY NEBULIZATION ROUTE 4 TIMES PER DAY, AS NEEDED
     Dates: start: 20190517
  13. OXYFAST [Concomitant]
     Active Substance: OXYCODONE
     Indication: DYSPNOEA
     Dosage: 5-10 MG, EVERY 1-2 HRS PRN
     Route: 060
     Dates: start: 20190527
  14. SCOPOLAMINE [Concomitant]
     Active Substance: SCOPOLAMINE
     Indication: SALIVARY HYPERSECRETION
     Dosage: 1 MG OVER 3 DAYS
     Route: 062
     Dates: start: 20190527
  15. ATIVAN [Concomitant]
     Active Substance: LORAZEPAM
     Indication: ANXIETY
     Dosage: 0.50 MG, 1 TABLET PRN, MAY REPEAT AFTER 1 HR IF INEFFECTIVE
     Dates: start: 20190527
  16. XANAX [Concomitant]
     Active Substance: ALPRAZOLAM
     Indication: PRODUCT USED FOR UNKNOWN INDICATION
     Dosage: 0.25 MG, 1 TAB 2 TIMES PER DAY PRN
     Dates: start: 20190517
  17. AMLODIPINE [Concomitant]
     Active Substance: AMLODIPINE BESYLATE
     Indication: HYPERTENSION
     Dosage: 5 MG, QD
     Route: 048
     Dates: start: 20190405, end: 20190528
  18. RIVASTIGMINE. [Concomitant]
     Active Substance: RIVASTIGMINE
     Indication: COGNITIVE DISORDER
     Dosage: 4.6 MG ,1 PATCH QD
     Route: 062
     Dates: start: 20190329, end: 20190528
  19. ACETAMINOPHEN. [Concomitant]
     Active Substance: ACETAMINOPHEN
     Indication: PAIN
     Dosage: 325 MG, 1-2 TABLET , EVERY 4 HRS PRN
     Route: 048
     Dates: start: 20190527
  20. ALPRAZOLAM. [Concomitant]
     Active Substance: ALPRAZOLAM
     Indication: ANXIETY
     Dosage: 0.25 MG PRN UPTO 3 TIMES PER DAY
     Route: 048
     Dates: start: 20170220, end: 20190528
  21. SIMVASTATIN. [Concomitant]
     Active Substance: SIMVASTATIN
     Indication: BLOOD CHOLESTEROL INCREASED
     Dosage: 20 MG, QD
     Route: 048
     Dates: start: 20160316, end: 20190528
  22. MIRALAX [Concomitant]
     Active Substance: POLYETHYLENE GLYCOL 3350
     Indication: PRODUCT USED FOR UNKNOWN INDICATION
     Dosage: 1 DOSE (17 GM/DOSE), 2 TIMES PER DAY
     Route: 048
     Dates: start: 20190517
  23. ROSUVASTATIN CALCIUM. [Concomitant]
     Active Substance: ROSUVASTATIN CALCIUM
     Indication: BLOOD CHOLESTEROL INCREASED
     Dosage: 10 MG, QD
     Route: 048
     Dates: start: 20190423, end: 20190528
  24. EXELON [Concomitant]
     Active Substance: RIVASTIGMINE TARTRATE
     Indication: PARKINSON^S DISEASE
  25. LEVSIN [Concomitant]
     Active Substance: HYOSCYAMINE SULFATE
     Indication: INCREASED BRONCHIAL SECRETION
     Dosage: 0.125 MCG, 1-2 TABS EVERY 4 HRS PRN
     Route: 060
     Dates: start: 20190527
  26. FLUOXETINE [Concomitant]
     Active Substance: FLUOXETINE HYDROCHLORIDE
     Indication: ANXIETY
     Dosage: 10 MG, QD
     Route: 048
     Dates: start: 20190329, end: 20190528
  27. TEMAZEPAM. [Concomitant]
     Active Substance: TEMAZEPAM
     Indication: INSOMNIA
     Dosage: 15 MG, QD
     Route: 048
     Dates: start: 20190329, end: 20190528
  28. MELATONIN [Concomitant]
     Active Substance: MELATONIN
     Indication: PRODUCT USED FOR UNKNOWN INDICATION
     Dosage: 3 MG, QD
     Route: 048
     Dates: start: 20190517
  29. COMPAZINE [Concomitant]
     Active Substance: PROCHLORPERAZINE MALEATE
     Indication: INCREASED BRONCHIAL SECRETION
     Dosage: 10 MG, EVERY 6 HRS PRN
     Route: 048
     Dates: start: 20190527

REACTIONS (1)
  - Gastrointestinal haemorrhage [Fatal]

NARRATIVE: CASE EVENT DATE: 20190515
